FAERS Safety Report 24856649 (Version 3)
Quarter: 2025Q1

REPORT INFORMATION
  Report Type: Other
  Country: IN (occurrence: IN)
  Receive Date: 20250117
  Receipt Date: 20250219
  Transmission Date: 20250408
  Serious: Yes (Death, Hospitalization, Other)
  Sender: LUPIN
  Company Number: IN-LUPIN PHARMACEUTICALS INC.-2025-00156

PATIENT

DRUGS (12)
  1. BUDESONIDE\FORMOTEROL FUMARATE DIHYDRATE [Suspect]
     Active Substance: BUDESONIDE\FORMOTEROL FUMARATE DIHYDRATE
     Indication: Bronchitis
     Dosage: UNK, BID, 2 TIMES PER DAY
     Dates: start: 20241007
  2. BUDESONIDE\FORMOTEROL FUMARATE DIHYDRATE [Suspect]
     Active Substance: BUDESONIDE\FORMOTEROL FUMARATE DIHYDRATE
     Dosage: UNK, TID (2 PUFFS, THREE TIMES PER DAY)
     Dates: start: 202410
  3. LINEZOLID [Suspect]
     Active Substance: LINEZOLID
     Indication: Antibiotic therapy
     Route: 065
     Dates: start: 20241007
  4. AUGMENTIN [Suspect]
     Active Substance: AMOXICILLIN\CLAVULANATE POTASSIUM
     Indication: Product used for unknown indication
     Dosage: 1 DOSAGE FORM, BID (5 DAYS)
     Route: 065
     Dates: start: 20241007
  5. ETOFYLLINE\THEOPHYLLINE [Suspect]
     Active Substance: ETOFYLLINE\THEOPHYLLINE
     Indication: Product used for unknown indication
     Dosage: UNK, BID (5 DAYS)
     Route: 065
     Dates: start: 20241007
  6. BUDESONIDE [Suspect]
     Active Substance: BUDESONIDE
     Indication: Bronchitis
     Dosage: UNK UNK, BID, 0.5 MG RESPULES
     Route: 065
  7. MEDROL [Suspect]
     Active Substance: METHYLPREDNISOLONE
     Indication: Product used for unknown indication
     Dosage: 1 DOSAGE FORM, BID (5 DAYS)
     Route: 065
     Dates: start: 20241007
  8. CLARITHROMYCIN [Suspect]
     Active Substance: CLARITHROMYCIN
     Indication: Bronchitis
     Dosage: 250 MG, BID, 2 TIMES PER DAY
     Route: 065
  9. TIOTROPIUM BROMIDE [Suspect]
     Active Substance: TIOTROPIUM BROMIDE
     Indication: Bronchitis
     Dosage: UNK UNK, QD, 2 PUFFS ONCE AT NIGHT
     Route: 065
     Dates: start: 202410
  10. ALBUTEROL SULFATE\IPRATROPIUM BROMIDE [Suspect]
     Active Substance: ALBUTEROL SULFATE\IPRATROPIUM BROMIDE
     Indication: Bronchitis
     Dosage: UNK, BID (RESPULES)
     Route: 065
  11. FLUCONAZOLE [Suspect]
     Active Substance: FLUCONAZOLE
     Indication: Product used for unknown indication
     Dosage: 1 DOSAGE FORM, BID (5 DAYS)
     Route: 065
     Dates: start: 20241007
  12. ALBUTEROL [Suspect]
     Active Substance: ALBUTEROL
     Indication: Bronchitis
     Route: 065

REACTIONS (4)
  - Myocardial infarction [Fatal]
  - Drug ineffective for unapproved indication [Unknown]
  - Drug resistance [Unknown]
  - Off label use [Unknown]
